FAERS Safety Report 9866297 (Version 1)
Quarter: 2014Q1

REPORT INFORMATION
  Report Type: Spontaneous
  Country: US (occurrence: US)
  Receive Date: 20140203
  Receipt Date: 20140203
  Transmission Date: 20141002
  Serious: No
  Sender: FDA-Public Use
  Company Number: US-ALLERGAN-1319422US

PATIENT
  Age: 72 Year
  Sex: Female

DRUGS (6)
  1. RESTASIS [Suspect]
     Indication: OCULAR ROSACEA
     Dosage: 2 GTT, BID
     Route: 047
  2. RESTASIS [Suspect]
     Indication: DRY EYE
  3. PRADAXA [Concomitant]
     Indication: PRODUCT USED FOR UNKNOWN INDICATION
  4. PRAVASTATIN [Concomitant]
     Indication: PRODUCT USED FOR UNKNOWN INDICATION
  5. CYMBALTA [Concomitant]
     Indication: PRODUCT USED FOR UNKNOWN INDICATION
  6. KLOR CON [Concomitant]
     Indication: PRODUCT USED FOR UNKNOWN INDICATION

REACTIONS (5)
  - Visual acuity reduced [Not Recovered/Not Resolved]
  - Asthenopia [Not Recovered/Not Resolved]
  - Off label use [Unknown]
  - Drug ineffective [Unknown]
  - Eye discharge [Not Recovered/Not Resolved]
